FAERS Safety Report 5361583-0 (Version None)
Quarter: 2007Q2

REPORT INFORMATION
  Report Type: 
  Country: None (occurrence: None)
  Receive Date: 20070619
  Receipt Date: 20070608
  Transmission Date: 20071010
  Serious: Yes (Other)
  Sender: FDA-Public Use
  Company Number: PHBS2007JP06197

PATIENT
  Age: 45 Year
  Sex: Female

DRUGS (2)
  1. HYDERGINE [Suspect]
     Indication: PERIPHERAL VASCULAR DISORDER
     Dosage: 1 MG, TID
     Route: 048
     Dates: start: 20070323, end: 20070405
  2. BAYNAS [Concomitant]
     Dosage: 75 MG, BID
     Route: 048
     Dates: start: 20070323, end: 20070405

REACTIONS (1)
  - GAMMA-GLUTAMYLTRANSFERASE INCREASED [None]
